FAERS Safety Report 6047362-X (Version None)
Quarter: 2009Q1

REPORT INFORMATION
  Report Type: 
  Country: None (occurrence: None)
  Receive Date: 20090122
  Receipt Date: 20090119
  Transmission Date: 20090719
  Serious: Yes (Other)
  Sender: FDA-Public Use
  Company Number: CA-MERCK-0901CAN00064

PATIENT
  Sex: Female

DRUGS (1)
  1. FOSAMAX PLUS D [Suspect]
     Route: 048
     Dates: start: 20080101

REACTIONS (3)
  - ABDOMINAL PAIN LOWER [None]
  - ARTHROPATHY [None]
  - GROIN PAIN [None]
